FAERS Safety Report 9832967 (Version 1)
Quarter: 2014Q1

REPORT INFORMATION
  Report Type: Report from Study
  Country: FR (occurrence: FR)
  Receive Date: 20140121
  Receipt Date: 20140121
  Transmission Date: 20141002
  Serious: Yes (Other)
  Sender: FDA-Public Use
  Company Number: FR-PFIZER INC-2014013952

PATIENT
  Age: 67 Year
  Sex: Female

DRUGS (8)
  1. TEMSIROLIMUS [Suspect]
     Indication: NON-SMALL CELL LUNG CANCER
     Dosage: 8 MG, WEEKLY
     Route: 042
     Dates: start: 20131210
  2. NERATINIB [Suspect]
     Indication: NON-SMALL CELL LUNG CANCER
     Dosage: 240 MG, DAILY
     Route: 048
     Dates: start: 20131210, end: 20131223
  3. NERATINIB [Suspect]
     Dosage: 160 MG, DAILY
     Route: 048
     Dates: start: 20131231
  4. LOPERAMIDE [Concomitant]
     Dosage: UNK
     Dates: start: 20131210
  5. TIORFAN [Concomitant]
     Dosage: UNK
     Dates: start: 20131217
  6. IVABRADINE HYDROCHLORIDE [Concomitant]
     Dosage: UNK
     Dates: start: 201109
  7. PARACETAMOL WITH CODEINE [Concomitant]
     Dosage: UNK
  8. FRAXODI [Concomitant]
     Dosage: UNK
     Dates: start: 201109

REACTIONS (2)
  - Erythema [Recovered/Resolved]
  - Dyspnoea [Recovered/Resolved]
